FAERS Safety Report 9804271 (Version 1)
Quarter: 2014Q1

REPORT INFORMATION
  Report Type: Spontaneous
  Country: US (occurrence: US)
  Receive Date: 20140108
  Receipt Date: 20140108
  Transmission Date: 20141002
  Serious: Yes (Other)
  Sender: FDA-Public Use
  Company Number: US-JNJFOC-20140100718

PATIENT
  Sex: 0

DRUGS (14)
  1. DOXORUBICIN [Suspect]
     Indication: NON-HODGKIN^S LYMPHOMA
     Route: 042
  2. DOXORUBICIN [Suspect]
     Indication: ACUTE LYMPHOCYTIC LEUKAEMIA
     Route: 042
  3. CYCLOPHOSPHAMIDE [Suspect]
     Indication: NON-HODGKIN^S LYMPHOMA
     Route: 065
  4. CYCLOPHOSPHAMIDE [Suspect]
     Indication: ACUTE LYMPHOCYTIC LEUKAEMIA
     Route: 065
  5. VINCRISTINE [Suspect]
     Indication: NON-HODGKIN^S LYMPHOMA
     Route: 065
  6. VINCRISTINE [Suspect]
     Indication: ACUTE LYMPHOCYTIC LEUKAEMIA
     Route: 065
  7. DEXAMETHASONE [Suspect]
     Indication: NON-HODGKIN^S LYMPHOMA
     Route: 065
  8. DEXAMETHASONE [Suspect]
     Indication: ACUTE LYMPHOCYTIC LEUKAEMIA
     Route: 065
  9. EVEROLIMUS [Suspect]
     Indication: NON-HODGKIN^S LYMPHOMA
     Dosage: 5 OR 10 MG (PHASE 1 DOSING) CONTINUOUSLY CONCURRENTLY WITH 8 CYCLES
     Route: 048
  10. EVEROLIMUS [Suspect]
     Indication: ACUTE LYMPHOCYTIC LEUKAEMIA
     Dosage: 5 OR 10 MG (PHASE 1 DOSING) CONTINUOUSLY CONCURRENTLY WITH 8 CYCLES
     Route: 048
  11. METHOTREXATE [Suspect]
     Indication: NON-HODGKIN^S LYMPHOMA
     Route: 065
  12. METHOTREXATE [Suspect]
     Indication: ACUTE LYMPHOCYTIC LEUKAEMIA
     Route: 065
  13. CYTARABINE [Suspect]
     Indication: NON-HODGKIN^S LYMPHOMA
     Route: 065
  14. CYTARABINE [Suspect]
     Indication: ACUTE LYMPHOCYTIC LEUKAEMIA
     Route: 065

REACTIONS (6)
  - Transaminases increased [Unknown]
  - Blood bilirubin increased [Unknown]
  - Infection [Unknown]
  - Mucosal inflammation [Unknown]
  - Diarrhoea [Unknown]
  - Headache [Unknown]
